FAERS Safety Report 8377694-1 (Version None)
Quarter: 2012Q2

REPORT INFORMATION
  Report Type: 
  Country: None (occurrence: None)
  Receive Date: 20120522
  Receipt Date: 20120518
  Transmission Date: 20120825
  Serious: Yes (Other)
  Sender: FDA-Public Use
  Company Number: US-GLAXOSMITHKLINE-A0936322A

PATIENT
  Age: 44 Year
  Sex: Male

DRUGS (4)
  1. CLARITIN [Concomitant]
  2. VENTOLIN [Suspect]
     Indication: ASTHMA
     Dosage: 1PUFF AS REQUIRED
     Route: 055
     Dates: start: 20010101
  3. PRILOSEC [Concomitant]
  4. ZYRTEC [Concomitant]

REACTIONS (5)
  - ASTHMA [None]
  - PRODUCT QUALITY ISSUE [None]
  - DYSPNOEA [None]
  - CHEST DISCOMFORT [None]
  - DRUG INEFFECTIVE [None]
